FAERS Safety Report 26203305 (Version 1)
Quarter: 2025Q4

REPORT INFORMATION
  Report Type: Report from Study
  Country: CA (occurrence: CA)
  Receive Date: 20251226
  Receipt Date: 20251226
  Transmission Date: 20260117
  Serious: Yes (Hospitalization)
  Sender: EISAI
  Company Number: CA-Eisai-EC-2025-201227

PATIENT
  Age: 49 Year
  Sex: Female

DRUGS (1)
  1. LENVIMA [Suspect]
     Active Substance: LENVATINIB
     Indication: Endometrial cancer
     Route: 048
     Dates: start: 20251021

REACTIONS (3)
  - Nausea [Unknown]
  - Vomiting [Unknown]
  - Mental impairment [Unknown]

NARRATIVE: CASE EVENT DATE: 20250101
